FAERS Safety Report 21452203 (Version 1)
Quarter: 2022Q4

REPORT INFORMATION
  Report Type: Report from Study
  Country: US (occurrence: US)
  Receive Date: 20221013
  Receipt Date: 20221013
  Transmission Date: 20230113
  Serious: Yes (Hospitalization)
  Sender: FDA-Public Use
  Company Number: US-PFIZER INC-202101119333

PATIENT
  Age: 41 Year
  Sex: Female
  Weight: 78.4 kg

DRUGS (4)
  1. ZOLOFT [Suspect]
     Active Substance: SERTRALINE HYDROCHLORIDE
     Indication: Depression
     Dosage: 100 MG, 1X/DAY (QD)
     Route: 048
     Dates: start: 2016, end: 202108
  2. UNSPECIFIED INGREDIENT [Suspect]
     Active Substance: UNSPECIFIED INGREDIENT
     Indication: COVID-19 immunisation
     Dosage: DOSE 4, SINGLE
     Route: 030
     Dates: start: 20210312, end: 20210312
  3. LITHIUM [Suspect]
     Active Substance: LITHIUM
     Indication: Bipolar disorder
     Dosage: 300 MG, 3X/DAY (TID)
     Route: 048
     Dates: start: 2018, end: 202108
  4. ZYPREXA [Suspect]
     Active Substance: OLANZAPINE
     Indication: Bipolar disorder
     Dosage: 100 MG, 2X/DAY (BID)
     Route: 048
     Dates: start: 2018

REACTIONS (2)
  - Bipolar disorder [Recovered/Resolved]
  - Therapy cessation [Unknown]

NARRATIVE: CASE EVENT DATE: 20210819
